FAERS Safety Report 24574299 (Version 1)
Quarter: 2024Q4

REPORT INFORMATION
  Report Type: Spontaneous
  Country: US (occurrence: None)
  Receive Date: 20241104
  Receipt Date: 20241104
  Transmission Date: 20250114
  Serious: No
  Sender: Valinor Pharma
  Company Number: US-ARIS GLOBAL-VLR202403-000025

PATIENT
  Sex: Female

DRUGS (2)
  1. MOVANTIK [Suspect]
     Active Substance: NALOXEGOL OXALATE
     Indication: Constipation
     Route: 048
  2. MIRALAX [Concomitant]
     Active Substance: POLYETHYLENE GLYCOL 3350
     Indication: Constipation
     Dosage: BY MIXING IN THE WATER
     Route: 048

REACTIONS (3)
  - Muscle spasms [Unknown]
  - Rhinorrhoea [Unknown]
  - Off label use [Unknown]

NARRATIVE: CASE EVENT DATE: 20240307
